FAERS Safety Report 6003576-6 (Version None)
Quarter: 2008Q4

REPORT INFORMATION
  Report Type: 
  Country: None (occurrence: None)
  Receive Date: 20081216
  Receipt Date: 20081210
  Transmission Date: 20090506
  Serious: Yes (Other)
  Sender: FDA-Public Use
  Company Number: US-BAYER-200832635GPV

PATIENT
  Age: 75 Year
  Sex: Male
  Weight: 77 kg

DRUGS (4)
  1. SULAR [Suspect]
     Indication: HYPERTENSION
     Route: 048
     Dates: start: 20040101, end: 20080831
  2. NISOLDIPINE [Suspect]
     Indication: HYPERTENSION
     Route: 048
     Dates: start: 20080901
  3. LIPITOR [Concomitant]
     Indication: BLOOD CHOLESTEROL DECREASED
     Route: 065
  4. AVALIDE [Concomitant]
     Indication: HYPERTENSION
     Route: 065

REACTIONS (2)
  - ABDOMINAL PAIN UPPER [None]
  - GASTRIC ULCER [None]
